FAERS Safety Report 5895535-9 (Version None)
Quarter: 2008Q3

REPORT INFORMATION
  Report Type: 
  Country: None (occurrence: None)
  Receive Date: 20080827
  Receipt Date: 20080620
  Transmission Date: 20090109
  Serious: Yes (Disabling, Other)
  Sender: FDA-Public Use
  Company Number: PHEH2008US02188

PATIENT
  Age: 51 Year
  Sex: Female
  Weight: 84.8 kg

DRUGS (2)
  1. RECLAST [Suspect]
     Indication: OSTEOPOROSIS
     Dosage: 5 MG, INFUSION
     Dates: start: 20080128
  2. OSCAL (CALCIUM CARBONATE) [Concomitant]

REACTIONS (2)
  - INFUSION SITE PAIN [None]
  - MUSCULOSKELETAL PAIN [None]
